FAERS Safety Report 5298430-1 (Version None)
Quarter: 2007Q2

REPORT INFORMATION
  Report Type: 
  Country: None (occurrence: None)
  Receive Date: 20070416
  Receipt Date: 20070404
  Transmission Date: 20071010
  Serious: Yes (Other)
  Sender: FDA-Public Use
  Company Number: US-PFIZER INC-2007028748

PATIENT
  Age: 62 Year
  Sex: Female

DRUGS (6)
  1. LIPITOR [Suspect]
     Indication: BLOOD CHOLESTEROL INCREASED
  2. PROPOFOL [Suspect]
     Indication: ANAESTHESIA
  3. SYNTHROID [Concomitant]
  4. VITAMINS [Concomitant]
  5. CALCIUM [Concomitant]
  6. ALBUTEROL [Concomitant]

REACTIONS (11)
  - ANAEMIA [None]
  - BLOOD GLUCOSE ABNORMAL [None]
  - BLOOD THYROID STIMULATING HORMONE INCREASED [None]
  - BRONCHOSPASM [None]
  - COUGH [None]
  - DROOLING [None]
  - DYSPNOEA [None]
  - EOSINOPHIL COUNT ABNORMAL [None]
  - LOW DENSITY LIPOPROTEIN INCREASED [None]
  - NEUTROPHIL COUNT DECREASED [None]
  - TONGUE BITING [None]
